FAERS Safety Report 24399034 (Version 1)
Quarter: 2024Q4

REPORT INFORMATION
  Report Type: Spontaneous
  Country: US (occurrence: US)
  Receive Date: 20241004
  Receipt Date: 20241004
  Transmission Date: 20250114
  Serious: No
  Sender: SANDOZ
  Company Number: US-002147023-NVSC2023US033696

PATIENT
  Sex: Female

DRUGS (3)
  1. ESTRADIOL [Suspect]
     Active Substance: ESTRADIOL
     Indication: Product used for unknown indication
     Dosage: UNK
     Route: 065
  2. RIVASTIGMINE [Suspect]
     Active Substance: RIVASTIGMINE
     Dosage: UNK
     Route: 062
  3. RIVASTIGMINE [Suspect]
     Active Substance: RIVASTIGMINE
     Indication: Product used for unknown indication
     Dosage: UNK
     Route: 065

REACTIONS (5)
  - Dermatitis contact [Unknown]
  - Application site pruritus [Unknown]
  - Application site rash [Unknown]
  - Drug ineffective [Unknown]
  - Suspected counterfeit product [Unknown]
